FAERS Safety Report 17654098 (Version 2)
Quarter: 2020Q3

REPORT INFORMATION
  Report Type: Spontaneous
  Country: US (occurrence: US)
  Receive Date: 20200410
  Receipt Date: 20200819
  Transmission Date: 20201102
  Serious: No
  Sender: FDA-Public Use
  Company Number: US-ELI_LILLY_AND_COMPANY-US202004003464

PATIENT
  Age: 48 Year
  Sex: Female

DRUGS (5)
  1. HUMALOG [Suspect]
     Active Substance: INSULIN LISPRO
     Dosage: 20?30 U, PRN (EACH MEAL)
     Route: 065
  2. HUMALOG [Suspect]
     Active Substance: INSULIN LISPRO
     Dosage: 60 U, UNKNOWN
     Route: 065
  3. HUMALOG [Suspect]
     Active Substance: INSULIN LISPRO
     Indication: PRODUCT USED FOR UNKNOWN INDICATION
     Dosage: 10?12 U, PRN (EACH MEAL)
     Route: 065
     Dates: start: 202002
  4. HUMALOG [Suspect]
     Active Substance: INSULIN LISPRO
     Dosage: 54?58 U, UNKNOWN
     Route: 065
  5. LANTUS [Concomitant]
     Active Substance: INSULIN GLARGINE
     Indication: PRODUCT USED FOR UNKNOWN INDICATION
     Dosage: 70?72 U, PRN (DEPENDING ON WHAT HER NUMBERS ARE)

REACTIONS (10)
  - Diabetes mellitus inadequate control [Unknown]
  - Feeling abnormal [Unknown]
  - Tremor [Unknown]
  - Overweight [Unknown]
  - Vision blurred [Unknown]
  - Blood glucose increased [Recovered/Resolved]
  - Hypertension [Unknown]
  - Blood glucose increased [Unknown]
  - Product storage error [Unknown]
  - Blood glucose decreased [Unknown]

NARRATIVE: CASE EVENT DATE: 202002
